FAERS Safety Report 8540866-7 (Version None)
Quarter: 2012Q3

REPORT INFORMATION
  Report Type: 
  Country: None (occurrence: None)
  Receive Date: 20120726
  Receipt Date: 20120720
  Transmission Date: 20120928
  Serious: No
  Sender: FDA-Public Use
  Company Number: US-PFIZER INC-2012176647

PATIENT
  Sex: Male
  Weight: 77.098 kg

DRUGS (4)
  1. CELEBREX [Suspect]
     Indication: GOUT
  2. PREVACID [Concomitant]
     Indication: GASTROOESOPHAGEAL REFLUX DISEASE
     Dosage: UNK
  3. CELEBREX [Suspect]
     Dosage: 200 MG, 1X/DAY
     Route: 048
     Dates: start: 20120401
  4. CELEBREX [Suspect]
     Indication: OSTEOARTHRITIS
     Dosage: 200 MG, 1X/DAY
     Route: 048
     Dates: start: 20100101, end: 20120301

REACTIONS (6)
  - MALAISE [None]
  - RED BLOOD CELL COUNT INCREASED [None]
  - ABDOMINAL DISCOMFORT [None]
  - GOUT [None]
  - PSYCHOMOTOR HYPERACTIVITY [None]
  - INFLAMMATION [None]
